FAERS Safety Report 6596085-7 (Version None)
Quarter: 2010Q1

REPORT INFORMATION
  Report Type: 
  Country: None (occurrence: None)
  Receive Date: 20100204
  Receipt Date: 20100107
  Transmission Date: 20100710
  Serious: No
  Sender: FDA-Public Use
  Company Number: 2010-00218

PATIENT
  Age: 70 Year
  Sex: Female

DRUGS (1)
  1. RAPAFLO [Suspect]
     Indication: URINARY RETENTION
     Dosage: 1 CAPSULE DAILY, ORAL
     Route: 048
     Dates: start: 20091217, end: 20100101

REACTIONS (3)
  - DYSPHAGIA [None]
  - EAR DISCOMFORT [None]
  - NASAL CONGESTION [None]
